FAERS Safety Report 5876709-X (Version None)
Quarter: 2008Q3

REPORT INFORMATION
  Report Type: 
  Country: None (occurrence: None)
  Receive Date: 20080910
  Receipt Date: 20080908
  Transmission Date: 20090109
  Serious: Yes (Other)
  Sender: FDA-Public Use
  Company Number: GB-TEVA-176061ISR

PATIENT
  Age: 77 Year
  Sex: Female

DRUGS (4)
  1. PACLITAXEL [Suspect]
     Indication: POROCARCINOMA
  2. CAPECITABINE [Suspect]
     Indication: POROCARCINOMA
  3. INTERFERON ALFA [Suspect]
     Indication: POROCARCINOMA
  4. RITUXIMAB [Suspect]
     Indication: CHRONIC LYMPHOCYTIC LEUKAEMIA

REACTIONS (1)
  - POROCARCINOMA [None]
